FAERS Safety Report 19816381 (Version 2)
Quarter: 2021Q3

REPORT INFORMATION
  Report Type: Report from Study
  Country: DE (occurrence: DE)
  Receive Date: 20210909
  Receipt Date: 20210916
  Transmission Date: 20211014
  Serious: Yes (Life-Threatening, Hospitalization, Other)
  Sender: FDA-Public Use
  Company Number: DE-EVEREST MEDICINES II (HK) LIMITED-2021-0547226

PATIENT
  Sex: Female
  Weight: 68 kg

DRUGS (8)
  1. G?CSF [Concomitant]
     Active Substance: GRANULOCYTE COLONY-STIMULATING FACTOR NOS
  2. ONDANSETRON [Concomitant]
     Active Substance: ONDANSETRON
     Dosage: UNK
     Dates: start: 20210727
  3. NEUPOGEN [Concomitant]
     Active Substance: FILGRASTIM
     Dosage: UNK
     Dates: start: 20210728
  4. ATROPIN [ATROPINE] [Concomitant]
     Active Substance: ATROPINE
     Dosage: UNK
     Dates: start: 20210727
  5. SACITUZUMAB GOVITECAN. [Suspect]
     Active Substance: SACITUZUMAB GOVITECAN
     Indication: TRIPLE NEGATIVE BREAST CANCER
     Dosage: UNK, C1D1
     Route: 042
     Dates: start: 20210726, end: 20210726
  6. LOPERAMIDE [Concomitant]
     Active Substance: LOPERAMIDE
     Dosage: UNK
     Dates: start: 20210727
  7. IBUPROFEN. [Concomitant]
     Active Substance: IBUPROFEN
     Dosage: UNK
     Dates: start: 20210728
  8. MOUTH WASH [Concomitant]

REACTIONS (3)
  - Cerebral disorder [Not Recovered/Not Resolved]
  - Product container issue [Recovered/Resolved]
  - Brain oedema [Recovered/Resolved with Sequelae]

NARRATIVE: CASE EVENT DATE: 20210827
